FAERS Safety Report 23557737 (Version 1)
Quarter: 2024Q1

REPORT INFORMATION
  Report Type: Spontaneous
  Country: NO (occurrence: None)
  Receive Date: 20240223
  Receipt Date: 20240223
  Transmission Date: 20240410
  Serious: Yes (Other)
  Sender: FDA-Public Use
  Company Number: NO-ROCHE-3511024

PATIENT
  Age: 61 Year
  Sex: Female

DRUGS (2)
  1. TECENTRIQ [Suspect]
     Active Substance: ATEZOLIZUMAB
     Indication: Product used for unknown indication
     Dosage: CYCLE 1
     Route: 065
     Dates: start: 20231116
  2. TECENTRIQ [Suspect]
     Active Substance: ATEZOLIZUMAB
     Dosage: CYCLE 2
     Route: 065
     Dates: start: 20231215

REACTIONS (3)
  - Brain oedema [Unknown]
  - Disease progression [Unknown]
  - Urinary tract infection [Unknown]
